FAERS Safety Report 18947500 (Version 2)
Quarter: 2021Q2

REPORT INFORMATION
  Report Type: Spontaneous
  Country: AE (occurrence: AE)
  Receive Date: 20210226
  Receipt Date: 20210420
  Transmission Date: 20210717
  Serious: Yes (Other)
  Sender: FDA-Public Use
  Company Number: AE-ELI_LILLY_AND_COMPANY-AE202102004008

PATIENT
  Age: 50 Year
  Sex: Female

DRUGS (2)
  1. RETEVMO [Suspect]
     Active Substance: SELPERCATINIB
     Indication: THYROID CANCER
     Dosage: 160 MG, BID
     Route: 065
     Dates: start: 20201106
  2. RETEVMO [Suspect]
     Active Substance: SELPERCATINIB
     Dosage: 80 MG
     Route: 065

REACTIONS (4)
  - Musculoskeletal chest pain [Unknown]
  - Hepatic enzyme abnormal [Unknown]
  - Hypertension [Unknown]
  - Neck pain [Unknown]
